FAERS Safety Report 7942083-8 (Version None)
Quarter: 2011Q4

REPORT INFORMATION
  Report Type: 
  Country: None (occurrence: None)
  Receive Date: 20111122
  Receipt Date: 20111122
  Transmission Date: 20120403
  Serious: Yes (Life-Threatening, Disabling, Other)
  Sender: FDA-Public Use
  Company Number: None

PATIENT
  Age: 72 Year
  Sex: Female
  Weight: 63.05 kg

DRUGS (1)
  1. FENTANYL [Suspect]
     Dosage: 50 MG IV DR. R. PATEL MY PRIMARY DR SAID AT MY AGE HE GAVE ME TOO MUCH
     Route: 042
     Dates: start: 20110831

REACTIONS (8)
  - HEADACHE [None]
  - HYPERTENSION [None]
  - TINNITUS [None]
  - MYALGIA [None]
  - FEELING ABNORMAL [None]
  - SEDATION [None]
  - URINARY RETENTION [None]
  - BLADDER PAIN [None]
